FAERS Safety Report 23832567 (Version 6)
Quarter: 2025Q1

REPORT INFORMATION
  Report Type: Spontaneous
  Country: US (occurrence: US)
  Receive Date: 20240508
  Receipt Date: 20250115
  Transmission Date: 20250408
  Serious: Yes (Hospitalization, Other)
  Sender: SANOFI AVENTIS
  Company Number: US-SA-SAC20240430000832

PATIENT
  Sex: Male
  Weight: 121 kg

DRUGS (4)
  1. DUPIXENT [Suspect]
     Active Substance: DUPILUMAB
     Indication: Asthma
     Dosage: 300 MG, QOW
     Route: 058
  2. DUPIXENT [Suspect]
     Active Substance: DUPILUMAB
     Indication: Rhinophyma
  3. DUPIXENT [Suspect]
     Active Substance: DUPILUMAB
     Indication: Pneumonia pseudomonal
  4. TOBRAMYCIN [Concomitant]
     Active Substance: TOBRAMYCIN

REACTIONS (8)
  - Pneumonia [Unknown]
  - Cystic fibrosis [Unknown]
  - Skin haemorrhage [Unknown]
  - Bacterial infection [Unknown]
  - Body temperature increased [Unknown]
  - Hypertension [Unknown]
  - Heart rate increased [Unknown]
  - Product use in unapproved indication [Unknown]

NARRATIVE: CASE EVENT DATE: 20240101
